FAERS Safety Report 9204535 (Version 1)
Quarter: 2013Q2

REPORT INFORMATION
  Report Type: Spontaneous
  Country: US (occurrence: None)
  Receive Date: 20130401
  Receipt Date: 20130401
  Transmission Date: 20140414
  Serious: No
  Sender: FDA-Public Use
  Company Number: None

PATIENT
  Age: 40 Year
  Sex: Male

DRUGS (1)
  1. ENBREL 50 MG AMGEN [Suspect]
     Indication: POLYARTHRITIS
     Dosage: 50 MG QOW SQ
     Route: 058
     Dates: start: 20070101, end: 20130215

REACTIONS (3)
  - Lip swelling [None]
  - Local swelling [None]
  - Swelling [None]
